FAERS Safety Report 12130139 (Version 1)
Quarter: 2016Q1

REPORT INFORMATION
  Report Type: Spontaneous
  Country: US (occurrence: US)
  Receive Date: 20160229
  Receipt Date: 20160229
  Transmission Date: 20160526
  Serious: No
  Sender: FDA-Public Use
  Company Number: US-ACORDA-ACO_25211_2011

PATIENT
  Age: 77 Year
  Sex: Female
  Weight: 65.31 kg

DRUGS (5)
  1. AMPYRA [Suspect]
     Active Substance: DALFAMPRIDINE
     Indication: MULTIPLE SCLEROSIS
     Dosage: 10 MG, BID
     Route: 048
     Dates: start: 201105, end: 20110614
  2. AMLODIPINE [Concomitant]
     Active Substance: AMLODIPINE BESYLATE
     Dosage: UNK
  3. AMPYRA [Suspect]
     Active Substance: DALFAMPRIDINE
     Dosage: 10 MG, BID
     Dates: start: 20110616
  4. AMPYRA [Suspect]
     Active Substance: DALFAMPRIDINE
     Dosage: 10 MG, QD
     Dates: start: 20110615, end: 20110615
  5. ATENOLOL. [Concomitant]
     Active Substance: ATENOLOL
     Dosage: UNK

REACTIONS (4)
  - Urinary tract infection [Recovered/Resolved]
  - Drug dose omission [Unknown]
  - Sensory disturbance [Recovered/Resolved]
  - Paraesthesia [Recovering/Resolving]

NARRATIVE: CASE EVENT DATE: 20110610
